FAERS Safety Report 13701374 (Version 1)
Quarter: 2017Q2

REPORT INFORMATION
  Report Type: Spontaneous
  Country: US (occurrence: US)
  Receive Date: 20170629
  Receipt Date: 20170629
  Transmission Date: 20170830
  Serious: No
  Sender: FDA-Public Use
  Company Number: US-ALLERGAN-1708042US

PATIENT
  Sex: Female

DRUGS (2)
  1. VIBERZI [Suspect]
     Active Substance: ELUXADOLINE
     Indication: PRODUCT USED FOR UNKNOWN INDICATION
     Dosage: 100 MG, BID
  2. VIBERZI [Suspect]
     Active Substance: ELUXADOLINE
     Dosage: 100 MG, QD

REACTIONS (2)
  - Inappropriate schedule of drug administration [Unknown]
  - Abdominal pain upper [Unknown]
